FAERS Safety Report 5316119-7 (Version None)
Quarter: 2007Q2

REPORT INFORMATION
  Report Type: 
  Country: None (occurrence: None)
  Receive Date: 20070503
  Receipt Date: 20070420
  Transmission Date: 20071010
  Serious: Yes (Hospitalization, Other)
  Sender: FDA-Public Use
  Company Number: US-ELI_LILLY_AND_COMPANY-US200704004566

PATIENT
  Age: 67 Year
  Sex: Female

DRUGS (8)
  1. CYMBALTA [Suspect]
     Indication: FIBROMYALGIA
     Dosage: UNK MG, UNK
  2. CARDIAZEM [Concomitant]
     Indication: CARDIAC DISORDER
  3. NEURONTIN [Concomitant]
  4. NITROGLYCERIN [Concomitant]
  5. SEROQUEL [Concomitant]
  6. XANAX [Concomitant]
  7. LIPITOR [Concomitant]
  8. FLEXERIL [Concomitant]

REACTIONS (3)
  - PAIN IN EXTREMITY [None]
  - SINUS OPERATION [None]
  - STAPHYLOCOCCAL INFECTION [None]
